FAERS Safety Report 9706590 (Version 1)
Quarter: 2013Q4

REPORT INFORMATION
  Report Type: Spontaneous
  Country: US (occurrence: US)
  Receive Date: 20131125
  Receipt Date: 20131125
  Transmission Date: 20140711
  Serious: Yes (Death, Hospitalization)
  Sender: FDA-Public Use
  Company Number: US-JNJFOC-20131112510

PATIENT
  Age: 84 Year
  Sex: Male
  Weight: 74.84 kg

DRUGS (5)
  1. TYLENOL 8 HOUR CAPLET [Suspect]
     Indication: HEADACHE
     Dosage: STARTED ABOUT THREE YEARS AGO, 2 TABLETS, WHENEVER HE HAD A HEADACHE
     Route: 048
     Dates: end: 20130905
  2. PRADAXA [Concomitant]
     Indication: ATRIAL FIBRILLATION
     Route: 065
  3. CARVEDILOL [Concomitant]
     Indication: PARKINSON^S DISEASE
     Dosage: TWO YEARS AGO
     Route: 065
  4. TIKOSYN [Concomitant]
     Indication: ATRIAL FIBRILLATION
     Dosage: THREE YEARS AGO
     Route: 065
  5. SPIRONOLACTONE [Concomitant]
     Indication: ATRIAL FIBRILLATION
     Dosage: THREE YEARS AGO
     Route: 065

REACTIONS (2)
  - Cerebrovascular accident [Fatal]
  - Expired drug administered [Unknown]
